FAERS Safety Report 20501976 (Version 1)
Quarter: 2022Q1

REPORT INFORMATION
  Report Type: Spontaneous
  Country: US (occurrence: None)
  Receive Date: 20220219
  Receipt Date: 20220219
  Transmission Date: 20220423
  Serious: No
  Sender: FDA-Public Use
  Company Number: None

PATIENT
  Age: 36 Year
  Sex: Male
  Weight: 91.35 kg

DRUGS (40)
  1. MYCOPHENOLATE MOFETIL [Suspect]
     Active Substance: MYCOPHENOLATE MOFETIL
     Indication: Dermatomyositis
     Dosage: 2 TABLET(S)  TWICE A DAY ORAL?
     Route: 048
     Dates: start: 20220124, end: 20220203
  2. CALCIPOTRINE [Concomitant]
  3. UNSPECIFIED INGREDIENT [Concomitant]
     Active Substance: UNSPECIFIED INGREDIENT
  4. TOPICAL SOLUTION [Concomitant]
  5. DESOCIMETASONE [Concomitant]
  6. DOCUSATE [Concomitant]
     Active Substance: DOCUSATE
  7. EURISA CRISABOROLE [Concomitant]
  8. TOPICAL OINTMENT [Concomitant]
  9. FAMOTIDINE [Concomitant]
     Active Substance: FAMOTIDINE
  10. FINASTERIDE [Concomitant]
     Active Substance: FINASTERIDE
  11. HELIOCARE [Concomitant]
  12. HYDROXYZINE PAMOATE [Concomitant]
     Active Substance: HYDROXYZINE PAMOATE
  13. MOMETASONE FUROATE [Concomitant]
  14. N-ACETYLCYSTEINE [Concomitant]
  15. NALTREXONE [Concomitant]
     Active Substance: NALTREXONE
  16. PANZYGA IMMUNE GLOBULIN [Concomitant]
  17. BISOCRIP [Concomitant]
  18. SOOLANTRA IVERMECTIN [Concomitant]
  19. TADALAFIL [Concomitant]
  20. 5-HPT 5- HYDROXYTRYPTOPHAN [Concomitant]
  21. ASPERCREME [Concomitant]
  22. LIDOCAINE [Concomitant]
  23. CALCIUIM [Concomitant]
  24. MAGNESIUM AND ZINC [Concomitant]
  25. MULLTIVITAMIN WITH MINERALS [Concomitant]
  26. VITAMIN D [Concomitant]
  27. GAMMA-AMBINOBUTYRIC ACID [Concomitant]
  28. MELATONIN [Concomitant]
  29. METHAMPHETAMINE [Concomitant]
  30. NIZORAL A-D [Concomitant]
     Active Substance: KETOCONAZOLE
  31. KETOCONAZOLE [Concomitant]
  32. OMEGA-3 [Concomitant]
  33. TOPICAL SHAMPOO [Concomitant]
  34. ONE-A-DAY MEN^S HEALTH MULTIVITAMIN [Concomitant]
  35. MULTPLE VITAMINS [Concomitant]
  36. PRAMOXINE HYDROCHLORIDE [Concomitant]
     Active Substance: PRAMOXINE HYDROCHLORIDE
  37. PROBIOTIC [Concomitant]
  38. PSYLLIUM [Concomitant]
  39. VALLERIAN ROOT [Concomitant]
  40. ZYRREC CETIRIZINE [Concomitant]

REACTIONS (10)
  - Depressed mood [None]
  - Fatigue [None]
  - Confusional state [None]
  - Thirst [None]
  - Abdominal discomfort [None]
  - Gastrointestinal disorder [None]
  - Eczema [None]
  - Rash pruritic [None]
  - Rash erythematous [None]
  - Rash [None]

NARRATIVE: CASE EVENT DATE: 20220203
